FAERS Safety Report 6693646-1 (Version None)
Quarter: 2010Q2

REPORT INFORMATION
  Report Type: 
  Country: None (occurrence: None)
  Receive Date: 20100423
  Receipt Date: 20100412
  Transmission Date: 20101027
  Serious: Yes (Other)
  Sender: FDA-Public Use
  Company Number: US-ASTRAZENECA-2009SE18291

PATIENT
  Age: 16187 Day
  Sex: Female
  Weight: 106.1 kg

DRUGS (3)
  1. SEROQUEL [Suspect]
     Route: 048
     Dates: start: 20020103
  2. PROZAC [Concomitant]
     Dates: start: 20020103
  3. TOPAMAX [Concomitant]
     Dates: start: 20020103

REACTIONS (2)
  - DIABETES MELLITUS [None]
  - DIABETIC NEUROPATHY [None]
